FAERS Safety Report 20194091 (Version 1)
Quarter: 2021Q4

REPORT INFORMATION
  Report Type: Report from Study
  Country: US (occurrence: None)
  Receive Date: 20211216
  Receipt Date: 20211216
  Transmission Date: 20220303
  Serious: Yes (Other)
  Sender: FDA-Public Use
  Company Number: 2021A872716

PATIENT
  Age: 47 Year
  Sex: Female
  Weight: 48.1 kg

DRUGS (1)
  1. LYNPARZA [Suspect]
     Active Substance: OLAPARIB
     Indication: Breast cancer
     Route: 048
     Dates: start: 202109

REACTIONS (1)
  - Feeling abnormal [Unknown]
